FAERS Safety Report 7882563-7 (Version None)
Quarter: 2011Q4

REPORT INFORMATION
  Report Type: 
  Country: None (occurrence: None)
  Receive Date: 20111101
  Receipt Date: 20110616
  Transmission Date: 20120403
  Serious: No
  Sender: FDA-Public Use
  Company Number: US-AMGEN-USASP2011025123

PATIENT
  Age: 60 Year
  Sex: Female
  Weight: 92.971 kg

DRUGS (3)
  1. TRAMADOL HCL [Concomitant]
     Dosage: UNK
  2. ENBREL [Suspect]
     Indication: RHEUMATOID ARTHRITIS
     Dosage: 50 MG, QWK
     Dates: start: 20110121, end: 20110601
  3. GABAPENTIN [Concomitant]
     Dosage: UNK

REACTIONS (2)
  - BURNING SENSATION [None]
  - NIGHT SWEATS [None]
